FAERS Safety Report 16817979 (Version 1)
Quarter: 2019Q3

REPORT INFORMATION
  Report Type: Spontaneous
  Country: US (occurrence: US)
  Receive Date: 20190917
  Receipt Date: 20190917
  Transmission Date: 20191005
  Serious: Yes (Life-Threatening, Hospitalization, Other)
  Sender: FDA-Public Use
  Company Number: US-HIKMA PHARMACEUTICALS USA INC.-US-H14001-19-04908

PATIENT
  Age: 24 Year
  Sex: Female

DRUGS (3)
  1. CAFFEINE. [Suspect]
     Active Substance: CAFFEINE
     Indication: WEIGHT DECREASED
     Route: 065
  2. TORSEMIDE. [Suspect]
     Active Substance: TORSEMIDE
     Indication: PRODUCT USED FOR UNKNOWN INDICATION
     Route: 065
  3. MELOXICAM. [Concomitant]
     Active Substance: MELOXICAM
     Indication: DYSMENORRHOEA
     Route: 065

REACTIONS (8)
  - Intentional overdose [Unknown]
  - Brain injury [Unknown]
  - Suicidal ideation [Unknown]
  - Hypokalaemia [Recovering/Resolving]
  - Hyponatraemia [Recovering/Resolving]
  - Hypocalcaemia [Recovering/Resolving]
  - Cardiac arrest [Recovered/Resolved with Sequelae]
  - Multiple organ dysfunction syndrome [Unknown]
